FAERS Safety Report 16724548 (Version 1)
Quarter: 2019Q3

REPORT INFORMATION
  Report Type: Spontaneous
  Country: US (occurrence: US)
  Receive Date: 20190821
  Receipt Date: 20190821
  Transmission Date: 20191005
  Serious: Yes (Other)
  Sender: FDA-Public Use
  Company Number: PHEH2019US033936

PATIENT
  Age: 12 Year
  Sex: Female

DRUGS (6)
  1. VINCRISTINE [Suspect]
     Active Substance: VINCRISTINE
     Indication: OPTIC GLIOMA
  2. TEMOZOLOMIDE. [Suspect]
     Active Substance: TEMOZOLOMIDE
     Indication: OPTIC GLIOMA
  3. CARBOPLATIN. [Suspect]
     Active Substance: CARBOPLATIN
     Indication: OPTIC GLIOMA
  4. CARBOPLATIN. [Suspect]
     Active Substance: CARBOPLATIN
     Indication: NEUROFIBROMATOSIS
     Dosage: UNK
     Route: 065
     Dates: start: 20090320, end: 20100825
  5. VINCRISTINE [Suspect]
     Active Substance: VINCRISTINE
     Indication: NEUROFIBROMATOSIS
     Dosage: UNK
     Route: 065
     Dates: start: 20090320, end: 20100825
  6. TEMOZOLOMIDE. [Suspect]
     Active Substance: TEMOZOLOMIDE
     Indication: NEUROFIBROMATOSIS
     Dosage: UNK
     Route: 065
     Dates: start: 20090320, end: 20100825

REACTIONS (2)
  - Malignant neoplasm progression [Unknown]
  - Glioma [Unknown]

NARRATIVE: CASE EVENT DATE: 201905
